FAERS Safety Report 7954165 (Version 4)
Quarter: 2012Q4

REPORT INFORMATION
  Report Type: 
  Country: US (occurrence: US)
  Receive Date: 20110520
  Receipt Date: 20121106
  Transmission Date: 20130627
  Serious: Yes (Hospitalization, Other)
  Sender: FDA-Public Use
  Company Number: PHHY2011US38989

PATIENT
  Sex: Female

DRUGS (8)
  1. RITALIN LA [Suspect]
     Indication: BIPOLAR DISORDER
     Dosage: 10 mg, BID
     Route: 048
  2. RITALIN LA [Suspect]
     Dosage: 20 mg, QD
     Route: 048
  3. POTASSIUM [Concomitant]
     Dosage: UNK UKN, UNK
  4. KLONOPIN [Concomitant]
     Dosage: UNK UKN, UNK
  5. TRIDIONE [Concomitant]
     Dosage: UNK UKN, UNK
  6. SEROQUEL [Concomitant]
     Dosage: UNK UKN, UNK
  7. TRAZODONE [Concomitant]
     Dosage: UNK UKN, UNK
  8. ASPIRIN [Concomitant]
     Dosage: UNK UKN, UNK

REACTIONS (6)
  - Accident at home [Unknown]
  - Loss of consciousness [Unknown]
  - Intracranial aneurysm [Unknown]
  - Headache [Unknown]
  - Cerebrovascular accident [Unknown]
  - Bipolar disorder [Unknown]
